FAERS Safety Report 6337465-4 (Version None)
Quarter: 2009Q3

REPORT INFORMATION
  Report Type: 
  Country: None (occurrence: None)
  Receive Date: 20090902
  Receipt Date: 20090824
  Transmission Date: 20100115
  Serious: Yes (Hospitalization)
  Sender: FDA-Public Use
  Company Number: JP-BAYER-200912898BYL

PATIENT
  Age: 72 Year
  Sex: Male

DRUGS (6)
  1. NEXAVAR [Suspect]
     Indication: RENAL CELL CARCINOMA STAGE IV
     Dosage: TOTAL DAILY DOSE: 800 MG  UNIT DOSE: 200 MG
     Route: 048
     Dates: start: 20090718, end: 20090723
  2. NEXAVAR [Suspect]
     Dosage: TOTAL DAILY DOSE: 400 MG  UNIT DOSE: 200 MG
     Route: 048
     Dates: start: 20090724, end: 20090803
  3. SALOBEL [Concomitant]
     Route: 048
     Dates: start: 20090323
  4. AMLODIN OD [Concomitant]
     Route: 048
     Dates: start: 20090725
  5. AMLODIN OD [Concomitant]
     Route: 048
     Dates: start: 20090603, end: 20090724
  6. MOHRUS TAPE [Concomitant]
     Route: 062
     Dates: start: 20090803

REACTIONS (4)
  - BLOOD AMYLASE INCREASED [None]
  - PALMAR-PLANTAR ERYTHRODYSAESTHESIA SYNDROME [None]
  - RETINAL DETACHMENT [None]
  - STOMATITIS [None]
